FAERS Safety Report 6831593-2 (Version None)
Quarter: 2010Q3

REPORT INFORMATION
  Report Type: 
  Country: None (occurrence: None)
  Receive Date: 20100712
  Receipt Date: 20100630
  Transmission Date: 20110219
  Serious: Yes (Other)
  Sender: FDA-Public Use
  Company Number: PHHY2010CA30858

PATIENT
  Sex: Female

DRUGS (18)
  1. EXELON [Suspect]
     Indication: DEMENTIA
     Dosage: 4.6 MG / 24 HOURS
     Route: 062
     Dates: start: 20100509, end: 20100512
  2. APO-ACETAMINOPHEN [Concomitant]
     Dosage: 1 DF, PRN
     Route: 048
     Dates: start: 20100419
  3. ANTIPHLOGISTINE [Concomitant]
     Dosage: 1 APPLICATION CRM
     Route: 061
     Dates: start: 20100419
  4. DULCOLAX [Concomitant]
     Dosage: 10 MG, PRN
     Route: 054
     Dates: start: 20100419
  5. CALCIUM CARBONATE [Concomitant]
     Dosage: 1250 MG, BIDCC
     Dates: start: 20100419
  6. VITAMIN D3 [Concomitant]
     Dosage: 1000 U, DAILY
     Route: 048
     Dates: start: 20100419
  7. CITALOPRAM HYDROBROMIDE [Concomitant]
     Dosage: 30 MG, DAILY
     Route: 048
     Dates: start: 20100419
  8. CLOTRIMADERM [Concomitant]
     Dosage: 1 APPLICATION BID
     Route: 061
     Dates: start: 20100423, end: 20100507
  9. VITAMIN B-12 [Concomitant]
     Dosage: 1000 MCG, DAILY
     Route: 048
     Dates: start: 20100426
  10. DIOVOL [Concomitant]
     Dosage: 30 ML, PRN
     Route: 048
     Dates: start: 20100419
  11. SODIUM PHOSPHATES [Concomitant]
     Dosage: 130 ML DAILY PRN
     Route: 054
     Dates: start: 20100419
  12. AVAPRO [Concomitant]
     Dosage: 300 MG, DAILY
     Route: 048
     Dates: start: 20100419
  13. MILK OF MAGNESIA TAB [Concomitant]
     Dosage: 30 ML DAILY (PRN)
     Route: 048
     Dates: start: 20100419
  14. MIRTAZAPINE [Concomitant]
     Dosage: 1 DF, HS
     Route: 048
     Dates: start: 20100419
  15. CRESTOR [Concomitant]
     Dosage: 10 MG, HS
     Route: 048
     Dates: start: 20100419
  16. SENOKOT [Concomitant]
     Dosage: 8.6 MG, PRN
     Route: 048
     Dates: start: 20100419
  17. ABENOL [Concomitant]
     Dosage: 650 MG, PRN
     Route: 054
     Dates: start: 20100419
  18. ACETAMINOPHEN [Concomitant]
     Dosage: UNK
     Dates: start: 20100419

REACTIONS (1)
  - INCORRECT DOSE ADMINISTERED [None]
